FAERS Safety Report 17581560 (Version 4)
Quarter: 2023Q2

REPORT INFORMATION
  Report Type: Spontaneous
  Country: US (occurrence: US)
  Receive Date: 20200325
  Receipt Date: 20230511
  Transmission Date: 20230722
  Serious: Yes (Other)
  Sender: FDA-Public Use
  Company Number: US-GILEAD-2020-0456187

PATIENT
  Sex: Male
  Weight: 87.075 kg

DRUGS (20)
  1. TRUVADA [Suspect]
     Active Substance: EMTRICITABINE\TENOFOVIR DISOPROXIL FUMARATE
     Indication: HIV infection
     Dosage: UNK
     Route: 048
     Dates: start: 2005, end: 201612
  2. BIKTARVY [Concomitant]
     Active Substance: BICTEGRAVIR SODIUM\EMTRICITABINE\TENOFOVIR ALAFENAMIDE FUMARATE
  3. DESCOVY [Concomitant]
     Active Substance: EMTRICITABINE\TENOFOVIR ALAFENAMIDE FUMARATE
  4. TIVICAY [Concomitant]
     Active Substance: DOLUTEGRAVIR SODIUM
  5. AMLODIPINE BESYLATE [Concomitant]
     Active Substance: AMLODIPINE BESYLATE
  6. ASPIRIN [Concomitant]
     Active Substance: ASPIRIN
  7. BUPROPION HYDROCHLORIDE [Concomitant]
     Active Substance: BUPROPION HYDROCHLORIDE
  8. CAPSAICIN [Concomitant]
     Active Substance: CAPSAICIN
  9. CHANTIX [Concomitant]
     Active Substance: VARENICLINE TARTRATE
  10. CLARITHROMYCIN [Concomitant]
     Active Substance: CLARITHROMYCIN
  11. DOCUSATE CALCIUM [Concomitant]
     Active Substance: DOCUSATE CALCIUM
  12. BISACODYL [Concomitant]
     Active Substance: BISACODYL
  13. HYDROXYZINE [Concomitant]
     Active Substance: HYDROXYZINE HYDROCHLORIDE
  14. LISINOPRIL [Concomitant]
     Active Substance: LISINOPRIL
  15. METHOCARBAMOL [Concomitant]
     Active Substance: METHOCARBAMOL
  16. VITAMINS [Concomitant]
     Active Substance: VITAMINS
  17. NICORETTE [Concomitant]
     Active Substance: NICOTINE
  18. PAROXETINE [Concomitant]
     Active Substance: PAROXETINE
  19. PIROXICAM [Concomitant]
     Active Substance: PIROXICAM
  20. PRAVASTATIN [Concomitant]
     Active Substance: PRAVASTATIN

REACTIONS (12)
  - Renal cancer [Recovered/Resolved]
  - Abdominal injury [Recovered/Resolved]
  - Osteopenia [Not Recovered/Not Resolved]
  - Bone density decreased [Not Recovered/Not Resolved]
  - Emotional distress [Not Recovered/Not Resolved]
  - Anxiety [Not Recovered/Not Resolved]
  - Anhedonia [Not Recovered/Not Resolved]
  - Economic problem [Not Recovered/Not Resolved]
  - Pain [Not Recovered/Not Resolved]
  - Gait disturbance [Not Recovered/Not Resolved]
  - Dysstasia [Not Recovered/Not Resolved]
  - Loss of personal independence in daily activities [Not Recovered/Not Resolved]

NARRATIVE: CASE EVENT DATE: 20060101
